FAERS Safety Report 15904893 (Version 1)
Quarter: 2019Q1

REPORT INFORMATION
  Report Type: Spontaneous
  Country: US (occurrence: US)
  Receive Date: 20190204
  Receipt Date: 20190204
  Transmission Date: 20190417
  Serious: Yes (Other)
  Sender: FDA-Public Use
  Company Number: US-BAUSCH-BL-2019-002382

PATIENT
  Age: 80 Year
  Sex: Male

DRUGS (1)
  1. IPRATROPIUM BROMIDE. [Suspect]
     Active Substance: IPRATROPIUM BROMIDE
     Indication: ILL-DEFINED DISORDER
     Dosage: 2 SPRAYS IN EACH NOSTRIL, USED IT FOR ABOUT 10 SPRAYS
     Route: 045
     Dates: start: 201812

REACTIONS (11)
  - Insomnia [Unknown]
  - Constipation [Unknown]
  - Neuropathy peripheral [Unknown]
  - Pyrexia [Unknown]
  - Hypoaesthesia [Not Recovered/Not Resolved]
  - Fine motor skill dysfunction [Not Recovered/Not Resolved]
  - Adverse event [Unknown]
  - Nasal congestion [Unknown]
  - Pain [Unknown]
  - Nerve injury [Unknown]
  - Back pain [Unknown]

NARRATIVE: CASE EVENT DATE: 201812
